FAERS Safety Report 7132256-9 (Version None)
Quarter: 2010Q4

REPORT INFORMATION
  Report Type: 
  Country: None (occurrence: None)
  Receive Date: 20101202
  Receipt Date: 20101125
  Transmission Date: 20110411
  Serious: Yes (Life-Threatening, Hospitalization)
  Sender: FDA-Public Use
  Company Number: FR-BRISTOL-MYERS SQUIBB COMPANY-15407703

PATIENT
  Age: 40 Year
  Sex: Male

DRUGS (9)
  1. APROVEL TABS 300 MG [Suspect]
     Indication: HYPERTENSION
     Route: 048
     Dates: end: 20091122
  2. COMPETACT [Suspect]
     Indication: TYPE 2 DIABETES MELLITUS
     Dosage: 1DF=15MG/850MG
     Route: 048
     Dates: end: 20091122
  3. PANDEMRIX [Suspect]
     Indication: H1N1 INFLUENZA
     Route: 030
     Dates: start: 20091120
  4. BI-PROFENID [Suspect]
     Indication: ARTHRALGIA
     Dates: start: 20091115, end: 20091117
  5. CELEBREX [Concomitant]
  6. PRAVIGARD PAC (COPACKAGED) [Concomitant]
     Dates: end: 20091122
  7. SOLIAN [Concomitant]
     Dates: end: 20091122
  8. XATRAL [Concomitant]
     Dates: end: 20091122
  9. AKINETON [Concomitant]
     Dates: end: 20091122

REACTIONS (5)
  - CHOLESTASIS [None]
  - COMA ACIDOTIC [None]
  - CYTOLYTIC HEPATITIS [None]
  - LACTIC ACIDOSIS [None]
  - RENAL FAILURE ACUTE [None]
